FAERS Safety Report 8095523-0 (Version None)
Quarter: 2012Q1

REPORT INFORMATION
  Report Type: 
  Country: None (occurrence: None)
  Receive Date: 20120129
  Receipt Date: 20111216
  Transmission Date: 20120608
  Serious: No
  Sender: FDA-Public Use
  Company Number: US-ABBOTT-11P-163-0884317-00

PATIENT
  Sex: Female
  Weight: 53.572 kg

DRUGS (8)
  1. STOOL SOFTENER [Concomitant]
     Indication: PRODUCT USED FOR UNKNOWN INDICATION
  2. NAPROXIN [Concomitant]
     Indication: PRODUCT USED FOR UNKNOWN INDICATION
  3. MELATONIN [Concomitant]
     Indication: SLEEP DISORDER THERAPY
  4. ENTACORT [Concomitant]
     Indication: CROHN'S DISEASE
  5. HUMIRA [Suspect]
     Indication: CROHN'S DISEASE
     Dates: start: 20111101
  6. OXYCONTIN [Concomitant]
     Indication: PAIN
  7. PEPSID [Concomitant]
     Indication: PRODUCT USED FOR UNKNOWN INDICATION
  8. PENTASA [Concomitant]
     Indication: CROHN'S DISEASE

REACTIONS (3)
  - FLUSHING [None]
  - HEADACHE [None]
  - FATIGUE [None]
